FAERS Safety Report 22171038 (Version 3)
Quarter: 2023Q2

REPORT INFORMATION
  Report Type: Spontaneous
  Country: US (occurrence: US)
  Receive Date: 20230404
  Receipt Date: 20230410
  Transmission Date: 20230721
  Serious: No
  Sender: FDA-Public Use
  Company Number: US-SANOFI-01555131

PATIENT
  Age: 80 Year
  Sex: Male

DRUGS (1)
  1. SOLIQUA 100/33 [Suspect]
     Active Substance: INSULIN GLARGINE\LIXISENATIDE
     Indication: Type 2 diabetes mellitus
     Dosage: 46 IU, QD, DRUG TREATMENT DURATION:2 WEEKS
     Dates: start: 202303

REACTIONS (2)
  - Blood glucose decreased [Unknown]
  - Wrong dose [Unknown]

NARRATIVE: CASE EVENT DATE: 20230329
